FAERS Safety Report 6211024-6 (Version None)
Quarter: 2009Q2

REPORT INFORMATION
  Report Type: 
  Country: None (occurrence: None)
  Receive Date: 20090602
  Receipt Date: 20090526
  Transmission Date: 20091009
  Serious: Yes (Other)
  Sender: FDA-Public Use
  Company Number: US-TEVA-196152USA

PATIENT
  Age: 50 Year
  Sex: Female

DRUGS (1)
  1. GLIMEPIRIDE 1 MG, 2 MG + 4 MG TABLETS [Suspect]
     Route: 048
     Dates: start: 20060101

REACTIONS (1)
  - BREAST CANCER RECURRENT [None]
